FAERS Safety Report 9452379 (Version 2)
Quarter: 2013Q4

REPORT INFORMATION
  Report Type: Spontaneous
  Country: DE (occurrence: DE)
  Receive Date: 20130812
  Receipt Date: 20131022
  Transmission Date: 20140711
  Serious: Yes (Hospitalization)
  Sender: FDA-Public Use
  Company Number: DE-JNJFOC-20130800755

PATIENT
  Age: 78 Year
  Sex: Male

DRUGS (2)
  1. ZYTIGA [Suspect]
     Indication: PRODUCT USED FOR UNKNOWN INDICATION
     Route: 048
  2. PREDNISON [Concomitant]
     Route: 065

REACTIONS (2)
  - Liver function test abnormal [Recovering/Resolving]
  - Blood test abnormal [Recovering/Resolving]
